FAERS Safety Report 20756502 (Version 1)
Quarter: 2022Q2

REPORT INFORMATION
  Report Type: Report from Study
  Country: IT (occurrence: IT)
  Receive Date: 20220427
  Receipt Date: 20220427
  Transmission Date: 20220720
  Serious: Yes (Hospitalization)
  Sender: FDA-Public Use
  Company Number: None

PATIENT
  Age: 50 Year
  Sex: Female
  Weight: 60 kg

DRUGS (8)
  1. CARBOPLATIN [Suspect]
     Active Substance: CARBOPLATIN
     Indication: Breast cancer
     Dosage: DATE OF MOST RECENT DOSE OF CARBOPLATIN (180 MG) PRIOR TO SAE ONSET: 23-JUL-2021
     Route: 042
     Dates: start: 20210409, end: 20210819
  2. PACLITAXEL [Suspect]
     Active Substance: PACLITAXEL
     Indication: Breast cancer
     Dosage: DATE OF MOST RECENT DOSE OF PACLITAXEL (130 MG) PRIOR TO SAE ONSET: 23-JUL-2021
     Route: 042
     Dates: start: 20210409, end: 20210819
  3. TRASTUZUMAB [Suspect]
     Active Substance: TRASTUZUMAB
     Indication: Breast cancer
     Dosage: DATE OF MOST RECENT DOSE OF TRASTUZUMAB (348 MG) PRIOR TO SAE ONSET: 16-JUL-2021
     Route: 041
     Dates: start: 20210409
  4. ATEZOLIZUMAB [Suspect]
     Active Substance: ATEZOLIZUMAB
     Indication: Breast cancer
     Dosage: DATE OF MOST RECENT DOSE OF ATEZOLIZUMAB (1200 MG) PRIOR TO SAE
     Route: 041
     Dates: start: 20210409, end: 20210819
  5. PERTUZUMAB [Concomitant]
     Active Substance: PERTUZUMAB
     Indication: Breast cancer
     Dosage: DATE OF MOST RECENT DOSE OF PERTUZUMAB (420 MG) PRIOR TO SAE
     Route: 042
  6. ACETAMINOPHEN\CODEINE PHOSPHATE [Concomitant]
     Active Substance: ACETAMINOPHEN\CODEINE PHOSPHATE
     Indication: Pain
     Dates: start: 20210330, end: 20210809
  7. ACETAMINOPHEN [Concomitant]
     Active Substance: ACETAMINOPHEN
     Indication: Pain
     Dates: start: 20210330, end: 20210809
  8. ACETAMINOPHEN\IBUPROFEN [Concomitant]
     Active Substance: ACETAMINOPHEN\IBUPROFEN
     Indication: Pain
     Dates: start: 20210809, end: 20210812

REACTIONS (2)
  - Renal failure [Recovered/Resolved]
  - Off label use [Unknown]

NARRATIVE: CASE EVENT DATE: 20210812
